FAERS Safety Report 7202598-7 (Version None)
Quarter: 2010Q4

REPORT INFORMATION
  Report Type: 
  Country: None (occurrence: None)
  Receive Date: 20101126
  Receipt Date: 20100924
  Transmission Date: 20110411
  Serious: Yes (Hospitalization, Other)
  Sender: FDA-Public Use
  Company Number: 315414

PATIENT
  Age: 59 Year
  Sex: Female
  Weight: 76.2 kg

DRUGS (16)
  1. VICTOZA [Suspect]
     Indication: TYPE 2 DIABETES MELLITUS
     Dosage: 0.6 MG, QD, SUBCUTANEOUS ; 1.2 MG, QD
     Route: 058
     Dates: start: 20100814, end: 20100821
  2. VICTOZA [Suspect]
     Indication: TYPE 2 DIABETES MELLITUS
     Dosage: 0.6 MG, QD, SUBCUTANEOUS ; 1.2 MG, QD
     Route: 058
     Dates: start: 20100822, end: 20100915
  3. METFORMIN (METFORMIN) [Concomitant]
  4. ACTOS [Concomitant]
  5. GLIPIZIDE [Concomitant]
  6. LANTUS [Concomitant]
  7. SYNTHROID [Concomitant]
  8. ZETIA [Concomitant]
  9. WELCHOL [Concomitant]
  10. CRESTOR [Concomitant]
  11. ATENOLOL [Concomitant]
  12. DIOVAN HCT (HYDROHLOROTHIAZIDE, VALSARTAN) [Concomitant]
  13. NORVASC [Concomitant]
  14. AMITRIPTYLINE HYDROCHLORIDE [Concomitant]
  15. ERGOCALCIFEROL [Concomitant]
  16. ASPIRIN [Concomitant]

REACTIONS (1)
  - PANCREATITIS ACUTE [None]
